FAERS Safety Report 9223049 (Version 1)
Quarter: 2013Q2

REPORT INFORMATION
  Report Type: Spontaneous
  Country: JP (occurrence: JP)
  Receive Date: 20130410
  Receipt Date: 20130410
  Transmission Date: 20140414
  Serious: Yes (Death)
  Sender: FDA-Public Use
  Company Number: JP-ROCHE-GNE202637

PATIENT
  Age: 83 Year
  Sex: Female
  Weight: 50 kg

DRUGS (3)
  1. ACTIVACIN [Suspect]
     Indication: PULMONARY EMBOLISM
     Dosage: 1.5 MU, UNK, DOSE=1.5 MU
     Route: 042
  2. HEPARIN [Concomitant]
     Dosage: 2000 U
     Route: 065
  3. UROKINASE [Concomitant]
     Dosage: 48000 U
     Route: 065

REACTIONS (4)
  - Gastrointestinal haemorrhage [Fatal]
  - Intra-abdominal haemorrhage [Fatal]
  - Renal failure acute [Fatal]
  - Ventricular tachycardia [Fatal]
